FAERS Safety Report 6107610-4 (Version None)
Quarter: 2009Q1

REPORT INFORMATION
  Report Type: 
  Country: None (occurrence: None)
  Receive Date: 20090309
  Receipt Date: 20090226
  Transmission Date: 20090719
  Serious: Yes (Other)
  Sender: FDA-Public Use
  Company Number: BR-PFIZER INC-2009170434

PATIENT

DRUGS (4)
  1. EPELIN [Suspect]
     Indication: EPILEPSY
     Dosage: 5 ML, UNK
     Route: 048
     Dates: start: 20030401
  2. DRUG, UNSPECIFIED [Suspect]
  3. PHENOBARBITAL [Concomitant]
     Dosage: 50 MG, 1X/DAY
  4. ALL OTHER THERAPEUTIC PRODUCTS [Concomitant]
     Dosage: UNK

REACTIONS (3)
  - CONVULSION [None]
  - INFLAMMATION [None]
  - PYREXIA [None]
